FAERS Safety Report 9729752 (Version 1)
Quarter: 2013Q4

REPORT INFORMATION
  Report Type: Spontaneous
  Country: US (occurrence: US)
  Receive Date: 20131204
  Receipt Date: 20131204
  Transmission Date: 20140711
  Serious: No
  Sender: FDA-Public Use
  Company Number: US-GILEAD-2009-0021943

PATIENT
  Sex: Male
  Weight: 104.33 kg

DRUGS (12)
  1. LETAIRIS [Suspect]
     Indication: PULMONARY ARTERIAL HYPERTENSION
     Route: 048
     Dates: start: 20080718
  2. DIGOXIN [Concomitant]
  3. ATENOLOL [Concomitant]
  4. COUMADIN [Concomitant]
  5. HCTZ [Concomitant]
  6. LISINOPRIL [Concomitant]
  7. OMEPRAZOLE [Concomitant]
  8. METFORMIN [Concomitant]
  9. NEURONTIN [Concomitant]
  10. BISACODYL [Concomitant]
  11. COLACE [Concomitant]
  12. IRON [Concomitant]

REACTIONS (2)
  - Local swelling [Not Recovered/Not Resolved]
  - Weight increased [Unknown]
